FAERS Safety Report 8066960-5 (Version None)
Quarter: 2012Q1

REPORT INFORMATION
  Report Type: 
  Country: None (occurrence: None)
  Receive Date: 20120124
  Receipt Date: 20120116
  Transmission Date: 20120608
  Serious: Yes (Hospitalization)
  Sender: FDA-Public Use
  Company Number: DE-MERCK-1201DEU00054

PATIENT
  Sex: Female

DRUGS (3)
  1. CROMOLYN SODIUM AND REPROTEROL HYDROCHLORIDE [Concomitant]
     Route: 055
  2. MAGNESIUM (UNSPECIFIED) [Concomitant]
     Route: 065
  3. COZAAR [Suspect]
     Indication: HYPERTENSION
     Route: 048

REACTIONS (5)
  - TYPE 2 DIABETES MELLITUS [None]
  - ARTHROPATHY [None]
  - MOUTH CYST [None]
  - MYALGIA [None]
  - BLOOD PRESSURE INCREASED [None]
